FAERS Safety Report 4812508-5 (Version None)
Quarter: 2005Q4

REPORT INFORMATION
  Report Type: 
  Country: None (occurrence: None)
  Receive Date: 20051028
  Receipt Date: 20050209
  Transmission Date: 20060501
  Serious: No
  Sender: FDA-Public Use
  Company Number: US-GLAXOSMITHKLINE-A0544768A

PATIENT
  Age: 65 Year
  Sex: Female

DRUGS (6)
  1. ADVAIR DISKUS 100/50 [Suspect]
     Indication: ASTHMA
     Dosage: 1PUFF TWICE PER DAY
     Route: 055
     Dates: start: 20040901
  2. INDAPAMIDE [Concomitant]
  3. VITAMIN E [Concomitant]
  4. ASCORBIC ACID [Concomitant]
  5. CALCIUM GLUCONATE [Concomitant]
  6. MULTI-VITAMIN [Concomitant]

REACTIONS (2)
  - DYSPHONIA [None]
  - THROAT IRRITATION [None]
